FAERS Safety Report 5066964-0 (Version None)
Quarter: 2006Q3

REPORT INFORMATION
  Report Type: 
  Country: None (occurrence: None)
  Receive Date: 20060728
  Receipt Date: 20060718
  Transmission Date: 20061208
  Serious: Yes (Hospitalization)
  Sender: FDA-Public Use
  Company Number: 2006-07-1223

PATIENT
  Age: 41 Year
  Sex: Female

DRUGS (9)
  1. PEG-INTRON [Suspect]
     Indication: HEPATITIS C
     Dosage: SUBCUTANEOUS
     Route: 058
     Dates: start: 20060409
  2. REBETOL [Suspect]
     Indication: HEPATITIS C
     Dosage: ORAL
     Route: 048
     Dates: start: 20060409
  3. ALBUTEROL AEROSOL SOLUTION [Concomitant]
  4. IBUPROFEN [Concomitant]
  5. LORAZEPAM [Concomitant]
  6. NORCO (HYDROCODONE BITATRATE) [Concomitant]
  7. PAXIL [Concomitant]
  8. SEREVENT INHALATION AEROSOL AEROSOL SOLUTION [Concomitant]
  9. TRAZODONE HCL [Concomitant]

REACTIONS (3)
  - ASTHMA [None]
  - DYSPNOEA [None]
  - EYE DISORDER [None]
